FAERS Safety Report 5322924-3 (Version None)
Quarter: 2007Q1

REPORT INFORMATION
  Report Type: 
  Country: None (occurrence: None)
  Receive Date: 20070222
  Receipt Date: 20061121
  Transmission Date: 20070707
  Serious: Yes (Other)
  Sender: FDA-Public Use
  Company Number: 2006136384

PATIENT
  Age: 62 Year
  Sex: Female
  Weight: 74.8435 kg

DRUGS (4)
  1. EXUBERA [Suspect]
     Indication: DIABETES MELLITUS
     Dosage: 6 MG (1 MG,2 IN 1 D),INHALATION
     Route: 055
     Dates: start: 20060914
  2. LANTUS [Suspect]
     Indication: DIABETES MELLITUS
     Dosage: 22 I.U. (2 IN 1 D)
  3. ACTOS [Concomitant]
  4. ASPIRIN [Concomitant]

REACTIONS (5)
  - BLOOD GLUCOSE DECREASED [None]
  - BLOOD GLUCOSE INCREASED [None]
  - DEVICE MALFUNCTION [None]
  - HYPOGLYCAEMIA [None]
  - WEIGHT DECREASED [None]
